FAERS Safety Report 7641740-0 (Version None)
Quarter: 2011Q3

REPORT INFORMATION
  Report Type: 
  Country: None (occurrence: None)
  Receive Date: 20110728
  Receipt Date: 20110714
  Transmission Date: 20111222
  Serious: Yes (Death, Hospitalization)
  Sender: FDA-Public Use
  Company Number: DE-ROCHE-704107

PATIENT
  Sex: Male
  Weight: 68 kg

DRUGS (10)
  1. DOCITON [Concomitant]
  2. CERTICAN [Concomitant]
     Indication: IMMUNOSUPPRESSION
     Dosage: 1-0-1
     Route: 048
  3. RIBAVIRIN [Suspect]
     Dosage: 3-0-3
     Route: 048
     Dates: start: 20100422, end: 20100509
  4. PEGINTERFERON ALFA-2A [Suspect]
     Route: 058
     Dates: start: 20100422, end: 20100509
  5. ACTONEL [Concomitant]
     Dosage: 1-0-0
     Route: 048
  6. URSO FALK [Concomitant]
     Route: 048
  7. PANTOPRAZOLE [Concomitant]
     Dosage: 0-0-1
     Route: 048
  8. FUROSEMIDE [Concomitant]
     Dosage: 1-0-0
     Route: 048
  9. CHOLESTYRAMINE [Concomitant]
     Route: 048
  10. POLAMIDON [Concomitant]

REACTIONS (3)
  - ACUTE HEPATIC FAILURE [None]
  - SEPSIS [None]
  - HEPATIC ARTERY OCCLUSION [None]
